FAERS Safety Report 6554432-6 (Version None)
Quarter: 2010Q1

REPORT INFORMATION
  Report Type: 
  Country: None (occurrence: None)
  Receive Date: 20100127
  Receipt Date: 20100125
  Transmission Date: 20100710
  Serious: Yes (Hospitalization)
  Sender: FDA-Public Use
  Company Number: GXKR2009DE07998

PATIENT
  Age: 84 Year
  Sex: Female
  Weight: 63 kg

DRUGS (24)
  1. PREDNISOLONE [Interacting]
     Indication: CHRONIC OBSTRUCTIVE PULMONARY DISEASE
     Dosage: 5 MG, QD
     Route: 048
     Dates: start: 20090326
  2. PREDNISOLONE [Interacting]
     Dosage: 5 MG, QD
     Dates: start: 20090326, end: 20090406
  3. ACETYLSALICYLIC ACID [Concomitant]
     Indication: CORONARY ARTERY DISEASE
     Dosage: 100 MG/DAILY
     Route: 048
     Dates: start: 19930101, end: 20090414
  4. RULID [Interacting]
     Indication: PNEUMONIA
     Dosage: 300 MG, QD
     Route: 048
     Dates: start: 20090326, end: 20090406
  5. ZIENAM [Suspect]
     Indication: URINARY TRACT INFECTION
     Dosage: 500 MG, TID
     Route: 042
     Dates: start: 20090414, end: 20090416
  6. PANTOPRAZOLE [Interacting]
     Indication: PROPHYLAXIS AGAINST GASTROINTESTINAL ULCER
     Dosage: 40 MG, QD
     Route: 048
     Dates: start: 20090101
  7. PANTOPRAZOLE [Interacting]
     Dosage: 20 MG, QD
     Dates: start: 20041001
  8. SYMBICORT [Interacting]
     Indication: CHRONIC OBSTRUCTIVE PULMONARY DISEASE
     Dosage: 1 DF, BID
     Route: 055
     Dates: start: 20090101
  9. SYMBICORT [Interacting]
     Dosage: 1 DF, BID
     Dates: start: 20080701
  10. ACTRAPID HUMAN [Concomitant]
     Indication: TYPE 1 DIABETES MELLITUS
     Route: 058
  11. CALCIUM [Concomitant]
     Route: 048
  12. CARMEN [Concomitant]
     Indication: HYPERTENSION
     Dosage: 10 MG, BID
     Route: 048
  13. CARVEDILOL [Concomitant]
     Indication: HYPERTENSION
     Dosage: 25 MG, BID
     Route: 048
     Dates: start: 19950101
  14. LANTUS [Concomitant]
     Indication: TYPE 1 DIABETES MELLITUS
     Route: 058
  15. METRONIDAZOLE [Concomitant]
     Route: 048
  16. MOXONIDINE [Concomitant]
     Route: 048
  17. RAMIPRIL [Concomitant]
     Route: 048
  18. SIMETHICONE [Concomitant]
     Route: 048
  19. SIMVASTATIN [Concomitant]
     Route: 048
  20. SPIRIVA [Concomitant]
     Indication: CHRONIC OBSTRUCTIVE PULMONARY DISEASE
     Route: 055
  21. SPIRONOLACTONE [Concomitant]
     Route: 048
  22. TORSEMIDE [Concomitant]
     Indication: HYPERTENSION
     Dosage: 10 MG, QD
     Route: 048
     Dates: end: 20090407
  23. XIPAMIDE [Concomitant]
     Indication: HYPERTENSION
     Dosage: 20 MG, QD
     Route: 048
     Dates: start: 20090326, end: 20090414
  24. ROCEPHIN [Interacting]
     Indication: PNEUMONIA
     Dosage: 2 G, QD
     Route: 042
     Dates: start: 20090326, end: 20090406

REACTIONS (1)
  - CLOSTRIDIUM DIFFICILE COLITIS [None]
